FAERS Safety Report 5273010-2 (Version None)
Quarter: 2007Q1

REPORT INFORMATION
  Report Type: 
  Country: None (occurrence: None)
  Receive Date: 20070322
  Receipt Date: 20070316
  Transmission Date: 20070707
  Serious: Yes (Other)
  Sender: FDA-Public Use
  Company Number: GB-SHR-GB-2007-002410

PATIENT
  Age: 14 Year
  Sex: Female
  Weight: 65 kg

DRUGS (3)
  1. YASMIN [Suspect]
     Indication: ACNE
     Dosage: 1 TAB(S), 1X/DAY
     Route: 048
     Dates: start: 20060615, end: 20061024
  2. BECLOMETHASONE AQUEOUS [Concomitant]
     Dosage: 50 A?G, 2X/DAY
     Route: 045
     Dates: start: 20040101
  3. CROMOLYN SODIUM [Concomitant]
     Route: 047

REACTIONS (2)
  - SKIN STRIAE [None]
  - WEIGHT INCREASED [None]
